FAERS Safety Report 8343208-5 (Version None)
Quarter: 2012Q1

REPORT INFORMATION
  Report Type: 
  Country: None (occurrence: None)
  Receive Date: 20120330
  Receipt Date: 20110616
  Transmission Date: 20120608
  Serious: Yes (Other)
  Sender: FDA-Public Use
  Company Number: PHHY2011US55466

PATIENT
  Sex: Female

DRUGS (2)
  1. NAMENDA [Concomitant]
  2. EXELON [Suspect]
     Dosage: 4.6 MG,/ 24 HOURS, TRANSDERMAL, 9.5 MG/ 24 HOURS, TRANSDERMAL
     Route: 062

REACTIONS (3)
  - DEMENTIA ALZHEIMER'S TYPE [None]
  - AMNESIA [None]
  - IRRITABILITY [None]
